FAERS Safety Report 6835415-5 (Version None)
Quarter: 2010Q2

REPORT INFORMATION
  Report Type: 
  Country: None (occurrence: None)
  Receive Date: 20100520
  Receipt Date: 20091123
  Transmission Date: 20101027
  Serious: Yes (Other)
  Sender: FDA-Public Use
  Company Number: 2009214543

PATIENT
  Sex: Female

DRUGS (9)
  1. PROVERA [Suspect]
     Indication: HORMONE REPLACEMENT THERAPY
     Dosage: 10 MG, 2.5 MG, 5 MG
     Dates: start: 19950901
  2. OGEN [Suspect]
     Indication: HORMONE REPLACEMENT THERAPY
  3. PREMARIN [Suspect]
     Indication: HORMONE REPLACEMENT THERAPY
     Dosage: 0.3 MG
     Dates: start: 19900101, end: 19920101
  4. ESTRADERM [Suspect]
     Indication: HORMONE REPLACEMENT THERAPY
     Dosage: 0.05
     Dates: start: 19941201, end: 20020101
  5. ESTRATEST [Suspect]
     Indication: HORMONE REPLACEMENT THERAPY
  6. AYGESTIN [Suspect]
     Indication: HORMONE REPLACEMENT THERAPY
     Dosage: 1 MG
  7. ORAGEST (MEDROXYPROGESTERONE ACETATE) [Suspect]
     Indication: HORMONE REPLACEMENT THERAPY
  8. VIVELLE [Suspect]
     Indication: HORMONE REPLACEMENT THERAPY
  9. COMBIPATCH [Suspect]
     Indication: HORMONE REPLACEMENT THERAPY
     Dosage: 0.25 MG
     Dates: start: 20000101

REACTIONS (1)
  - BREAST CANCER FEMALE [None]
